FAERS Safety Report 25746757 (Version 2)
Quarter: 2025Q3

REPORT INFORMATION
  Report Type: Spontaneous
  Country: EU (occurrence: EU)
  Receive Date: 20250901
  Receipt Date: 20250903
  Transmission Date: 20251021
  Serious: Yes (Hospitalization, Other)
  Sender: MYLAN
  Company Number: EU-BLG-POL/2025/07/010695

PATIENT
  Age: 67 Year
  Sex: Female

DRUGS (9)
  1. CANDESARTAN [Suspect]
     Active Substance: CANDESARTAN
     Indication: Product used for unknown indication
     Dosage: 8 MILLIGRAM, QD, 8 MG (1-0-0)
  2. RIVAROXABAN [Suspect]
     Active Substance: RIVAROXABAN
     Indication: Product used for unknown indication
  3. TRIMETAZIDINE [Suspect]
     Active Substance: TRIMETAZIDINE
     Indication: Product used for unknown indication
     Dosage: 35 MILLIGRAM, BID, 35 MG (1-0-1) (70 MG, QD)
  4. ATORVASTATIN [Suspect]
     Active Substance: ATORVASTATIN
     Indication: Product used for unknown indication
     Dosage: 10 MILLIGRAM, QD, 10 MG (0-0-1)
  5. METOPROLOL [Suspect]
     Active Substance: METOPROLOL
     Indication: Product used for unknown indication
     Dosage: 75 MILLIGRAM, QD, 75 MG (1-0-0)
  6. LETROZOLE [Suspect]
     Active Substance: LETROZOLE
     Indication: Product used for unknown indication
     Dosage: 2.5 MILLIGRAM, QD, 2.5 MG (0-1-0)
  7. ASPIRIN [Suspect]
     Active Substance: ASPIRIN
     Indication: Product used for unknown indication
     Dosage: 75 MILLIGRAM, QD, 75 MG (0-0-1)
  8. CALCIUM CARBONATE [Suspect]
     Active Substance: CALCIUM CARBONATE
     Indication: Product used for unknown indication
     Dosage: 1 GRAM, QD, 1 G (1-0-0)
  9. ENOXAPARIN [Concomitant]
     Active Substance: ENOXAPARIN
     Indication: Thrombosis prophylaxis

REACTIONS (7)
  - Arrhythmia [Unknown]
  - Diverticulum intestinal haemorrhagic [Unknown]
  - Chronic kidney disease [Unknown]
  - Abnormal uterine bleeding [Recovered/Resolved]
  - Anaemia vitamin B12 deficiency [Unknown]
  - Lipid metabolism disorder [Unknown]
  - Gout [Unknown]
